FAERS Safety Report 4974886-6 (Version None)
Quarter: 2006Q1

REPORT INFORMATION
  Report Type: 
  Country: None (occurrence: None)
  Receive Date: 20060227
  Receipt Date: 20051121
  Transmission Date: 20060701
  Serious: No
  Sender: FDA-Public Use
  Company Number: PHEH2005US12825

PATIENT
  Age: 77 Year
  Sex: Female

DRUGS (5)
  1. ENABLEX [Suspect]
     Indication: POLLAKIURIA
     Dosage: 15 MG QD
     Dates: start: 20051108
  2. LIPITOR  / NET/ (ATORVASTATIN CALCIUM) [Concomitant]
  3. ATENOLOL [Concomitant]
  4. CELEBREX [Concomitant]
  5. ASPIRIN [Concomitant]

REACTIONS (4)
  - BACK PAIN [None]
  - DIZZINESS [None]
  - DRY MOUTH [None]
  - STOMACH DISCOMFORT [None]
